FAERS Safety Report 24281082 (Version 6)
Quarter: 2025Q2

REPORT INFORMATION
  Report Type: Spontaneous
  Country: KR (occurrence: KR)
  Receive Date: 20240904
  Receipt Date: 20250527
  Transmission Date: 20250717
  Serious: Yes (Hospitalization)
  Sender: MYLAN
  Company Number: KR-MYLANLABS-2024M1062273

PATIENT
  Age: 47 Year
  Sex: Male

DRUGS (8)
  1. CLOZARIL [Suspect]
     Active Substance: CLOZAPINE
     Indication: Schizophrenia
  2. CLOZARIL [Suspect]
     Active Substance: CLOZAPINE
     Dosage: 200 MILLIGRAM, QD (100 MILLIGRAM AM (MORNING) AND 100 MILLIGRAM HS (AT NIGHT)
     Dates: start: 20230904
  3. Samsung tamsulosin sr [Concomitant]
     Dosage: 0.4 MILLIGRAM, PM
  4. Fina [Concomitant]
     Dosage: 5 MILLIGRAM, PM
  5. VALPROATE SODIUM [Concomitant]
     Active Substance: VALPROATE SODIUM
     Dosage: 300 MILLIGRAM, BID (AT MORNING AND HS (NIGHT))
  6. Slivan [Concomitant]
     Dosage: 1 MILLIGRAM, BID (AT MORNING AND HS (NIGHT))
  7. Agio [Concomitant]
     Dosage: UNK, BID
  8. Sinil [Concomitant]

REACTIONS (3)
  - Schizophrenia [Unknown]
  - Neutrophil count decreased [Recovered/Resolved]
  - White blood cell count decreased [Recovered/Resolved]

NARRATIVE: CASE EVENT DATE: 20240702
